FAERS Safety Report 5007273-5 (Version None)
Quarter: 2006Q2

REPORT INFORMATION
  Report Type: 
  Country: None (occurrence: None)
  Receive Date: 20060518
  Receipt Date: 20060518
  Transmission Date: 20061013
  Serious: Yes (Hospitalization)
  Sender: FDA-Public Use
  Company Number: None

PATIENT
  Age: 73 Year
  Sex: Female
  Weight: 72.1219 kg

DRUGS (1)
  1. FLEET PHOSPHA SODA 3 OZ. [Suspect]
     Indication: COLONOSCOPY
     Dosage: 1.5 OZ  EVENING AND MORNING PO
     Route: 048
     Dates: start: 20060403, end: 20060404

REACTIONS (2)
  - CALCINOSIS [None]
  - RENAL FAILURE [None]
